FAERS Safety Report 21342952 (Version 3)
Quarter: 2023Q1

REPORT INFORMATION
  Report Type: Spontaneous
  Country: JP (occurrence: JP)
  Receive Date: 20220916
  Receipt Date: 20230105
  Transmission Date: 20230417
  Serious: Yes (Hospitalization, Other)
  Sender: FDA-Public Use
  Company Number: JP-JNJFOC-20220926652

PATIENT
  Age: 60 Year
  Sex: Male
  Weight: 69.4 kg

DRUGS (13)
  1. VELCADE [Suspect]
     Active Substance: BORTEZOMIB
     Indication: Primary amyloidosis
     Dosage: 2.4 MILLIGRAM, 1/WEEK
     Route: 065
     Dates: start: 20220303
  2. VELCADE [Suspect]
     Active Substance: BORTEZOMIB
     Dosage: 2.4 MILLIGRAM, 1/WEEK
     Route: 065
     Dates: start: 20220310
  3. DARATUMUMAB\HYALURONIDASE-FIHJ [Suspect]
     Active Substance: DARATUMUMAB\HYALURONIDASE-FIHJ
     Indication: Primary amyloidosis
     Dosage: 1800 MILLIGRAM, 1/WEEK
     Route: 058
     Dates: start: 20220303
  4. DARATUMUMAB\HYALURONIDASE-FIHJ [Suspect]
     Active Substance: DARATUMUMAB\HYALURONIDASE-FIHJ
     Dosage: 1800 MILLIGRAM, 1/WEEK
     Route: 058
     Dates: start: 20220310
  5. CYCLOPHOSPHAMIDE [Suspect]
     Active Substance: CYCLOPHOSPHAMIDE
     Indication: Primary amyloidosis
     Dosage: 500 MILLIGRAM, 1/WEEK
     Route: 041
     Dates: start: 20220310
  6. PRAVASTATIN SODIUM [Concomitant]
     Active Substance: PRAVASTATIN SODIUM
     Indication: Dyslipidaemia
     Dosage: UNK
     Route: 048
  7. LENADEX [Concomitant]
     Active Substance: DEXAMETHASONE ACETATE
     Indication: Primary amyloidosis
     Dosage: 20 MILLIGRAM, 1/WEEK
     Route: 048
     Dates: start: 20220303
  8. DESLORATADINE [Concomitant]
     Active Substance: DESLORATADINE
     Indication: Prophylaxis
     Dosage: 5 MILLIGRAM, 1/WEEK
     Route: 048
     Dates: start: 20220303
  9. CALONAL [Concomitant]
     Active Substance: ACETAMINOPHEN
     Indication: Prophylaxis
     Dosage: 1000 MILLIGRAM, 1/WEEK
     Route: 048
     Dates: start: 20220303
  10. SINGULAIR [Concomitant]
     Active Substance: MONTELUKAST SODIUM
     Indication: Prophylaxis
     Dosage: 10 MILLIGRAM, 1/WEEK
     Route: 048
     Dates: start: 20220303
  11. ISOSORBIDE DINITRATE [Concomitant]
     Active Substance: ISOSORBIDE DINITRATE
     Indication: Prinzmetal angina
     Dosage: 40 MILLIGRAM, QD
     Route: 062
  12. BISOPROLOL FUMARATE [Concomitant]
     Active Substance: BISOPROLOL FUMARATE
     Indication: Prinzmetal angina
     Dosage: 1.25 MILLIGRAM, QD
     Route: 048
  13. ROSUVASTATIN CALCIUM [Concomitant]
     Active Substance: ROSUVASTATIN CALCIUM
     Indication: Hyperlipidaemia
     Dosage: 2.5 MILLIGRAM, QD
     Route: 048

REACTIONS (6)
  - Chest discomfort [Recovered/Resolved]
  - Infusion related reaction [Recovered/Resolved]
  - Pyrexia [Recovered/Resolved]
  - Neuropathy peripheral [Recovered/Resolved]
  - Hypotension [Unknown]
  - Hypoaesthesia [Not Recovered/Not Resolved]

NARRATIVE: CASE EVENT DATE: 20220307
